FAERS Safety Report 6056262-0 (Version None)
Quarter: 2009Q1

REPORT INFORMATION
  Report Type: 
  Country: None (occurrence: None)
  Receive Date: 20090126
  Receipt Date: 20090126
  Transmission Date: 20090719
  Serious: Yes (Other)
  Sender: FDA-Public Use
  Company Number: None

PATIENT
  Age: 61 Year
  Sex: Male
  Weight: 77.7 kg

DRUGS (2)
  1. SIMVASTATIN [Suspect]
     Indication: GOUT
     Dosage: 20 MG PO UNKNOWN; 300 MG EVERY DAY PO
     Route: 048
     Dates: start: 20060405
  2. SIMVASTATIN [Suspect]
     Indication: HYPERLIPIDAEMIA
     Dosage: 20 MG PO UNKNOWN; 300 MG EVERY DAY PO
     Route: 048
     Dates: start: 20060405

REACTIONS (1)
  - MYALGIA [None]
